FAERS Safety Report 6375832-3 (Version None)
Quarter: 2009Q3

REPORT INFORMATION
  Report Type: 
  Country: None (occurrence: None)
  Receive Date: 20090924
  Receipt Date: 20090921
  Transmission Date: 20100115
  Serious: Yes (Other)
  Sender: FDA-Public Use
  Company Number: US-ELI_LILLY_AND_COMPANY-US200909003409

PATIENT
  Sex: Male

DRUGS (2)
  1. HUMALOG [Suspect]
     Dosage: UNK, EACH EVENING
     Dates: start: 20020101
  2. METFORMIN [Concomitant]
     Dates: start: 20030101, end: 20070101

REACTIONS (14)
  - ANAESTHETIC COMPLICATION [None]
  - BLOOD GLUCOSE INCREASED [None]
  - DRUG HYPERSENSITIVITY [None]
  - FALL [None]
  - FEAR [None]
  - GLYCOSYLATED HAEMOGLOBIN INCREASED [None]
  - INCORRECT DOSE ADMINISTERED [None]
  - INTENTIONAL DRUG MISUSE [None]
  - LOWER LIMB FRACTURE [None]
  - MALAISE [None]
  - PROCEDURAL COMPLICATION [None]
  - RESPIRATORY ARREST [None]
  - THERAPEUTIC RESPONSE DECREASED [None]
  - TOOTH EXTRACTION [None]
